FAERS Safety Report 4987736-9 (Version None)
Quarter: 2006Q2

REPORT INFORMATION
  Report Type: 
  Country: None (occurrence: None)
  Receive Date: 20060424
  Receipt Date: 20060413
  Transmission Date: 20061013
  Serious: Yes (Hospitalization)
  Sender: FDA-Public Use
  Company Number: HQWYE818213APR06

PATIENT
  Age: 34 Year
  Sex: Female

DRUGS (1)
  1. ZURCALE                             (PANTOPRAZOLE) [Suspect]
     Dosage: 40 MG 1X PER 1 DAY ORAL
     Route: 048
     Dates: start: 20060203, end: 20060201

REACTIONS (2)
  - DERMATITIS ALLERGIC [None]
  - SKIN EXFOLIATION [None]
